FAERS Safety Report 8924975 (Version 1)
Quarter: 2012Q4

REPORT INFORMATION
  Report Type: 
  Country: US (occurrence: US)
  Receive Date: 20121126
  Receipt Date: 20121126
  Transmission Date: 20130627
  Serious: Yes (Other)
  Sender: FDA-Public Use
  Company Number: US-ELI_LILLY_AND_COMPANY-US201211006306

PATIENT
  Age: 12 Year
  Sex: Male

DRUGS (1)
  1. HUMATROPE [Suspect]

REACTIONS (4)
  - Convulsion [Not Recovered/Not Resolved]
  - Loss of consciousness [Recovered/Resolved]
  - Intentional drug misuse [Recovered/Resolved]
  - Somnolence [Unknown]
